FAERS Safety Report 18150897 (Version 1)
Quarter: 2020Q3

REPORT INFORMATION
  Report Type: Spontaneous
  Country: US (occurrence: US)
  Receive Date: 20200814
  Receipt Date: 20200814
  Transmission Date: 20201103
  Serious: Yes (Disabling)
  Sender: FDA-Public Use
  Company Number: US-BEAUTYAVENUES-2020-US-015957

PATIENT
  Age: 31 Year
  Sex: Female
  Weight: 61.24 kg

DRUGS (2)
  1. ANTI?BACTERIAL HAND VANILLA COCONUT [Suspect]
     Active Substance: ALCOHOL
     Indication: PROPHYLAXIS
     Dosage: USED TWICE
     Route: 061
     Dates: start: 20200705, end: 20200725
  2. UNSPECIFIED ORAL CONTRACEPTIVE [Concomitant]

REACTIONS (11)
  - Application site swelling [Recovered/Resolved]
  - Mobility decreased [Recovered/Resolved]
  - Disturbance in attention [Recovered/Resolved]
  - Scab [Recovering/Resolving]
  - Application site vesicles [Recovered/Resolved]
  - Loss of personal independence in daily activities [Recovered/Resolved with Sequelae]
  - Application site pain [Recovering/Resolving]
  - Application site pain [Recovered/Resolved]
  - Application site erythema [Recovered/Resolved]
  - Application site warmth [Recovered/Resolved]
  - Hypoaesthesia [Recovered/Resolved]

NARRATIVE: CASE EVENT DATE: 20200705
